FAERS Safety Report 5007588-0 (Version None)
Quarter: 2006Q2

REPORT INFORMATION
  Report Type: 
  Country: None (occurrence: None)
  Receive Date: 20060522
  Receipt Date: 20060518
  Transmission Date: 20061013
  Serious: Yes (Life-Threatening, Hospitalization, Other)
  Sender: FDA-Public Use
  Company Number: PHBS2006JP07431

PATIENT
  Age: 52 Year
  Sex: Male

DRUGS (1)
  1. VOLTAREN [Suspect]
     Indication: SHOULDER PAIN
     Dosage: 25 MG, ONCE/SINGLE
     Route: 048
     Dates: start: 20060518, end: 20060518

REACTIONS (4)
  - BLOOD PRESSURE DECREASED [None]
  - HYPOAESTHESIA ORAL [None]
  - PRURITUS [None]
  - SHOCK [None]
